FAERS Safety Report 16128103 (Version 1)
Quarter: 2019Q1

REPORT INFORMATION
  Report Type: Spontaneous
  Country: CA (occurrence: CA)
  Receive Date: 20190328
  Receipt Date: 20190328
  Transmission Date: 20190418
  Serious: Yes (Other)
  Sender: FDA-Public Use
  Company Number: CA-TEVA-2019-CA-1030004

PATIENT
  Age: 7 Decade
  Sex: Female

DRUGS (29)
  1. FLUCONAZOLE. [Concomitant]
     Active Substance: FLUCONAZOLE
     Indication: CANDIDA INFECTION
     Dosage: 150 MILLIGRAM DAILY;
     Route: 065
     Dates: start: 201604
  2. SULFAMETHOXAZOLE/TRIMETHOPRIM [Concomitant]
     Active Substance: SULFAMETHOXAZOLE\TRIMETHOPRIM
     Indication: KLEBSIELLA INFECTION
  3. ACETAMINOPHEN. [Concomitant]
     Active Substance: ACETAMINOPHEN
     Indication: PAIN
     Route: 065
     Dates: start: 201712
  4. CLOBETASOL PROPIONATE. [Concomitant]
     Active Substance: CLOBETASOL PROPIONATE
     Indication: PUSTULAR PSORIASIS
     Route: 061
     Dates: start: 201805
  5. FUSIDIC ACID [Concomitant]
     Active Substance: FUSIDIC ACID
     Indication: ULCER
     Route: 061
  6. FLUCONAZOLE. [Concomitant]
     Active Substance: FLUCONAZOLE
     Indication: CANDIDA INFECTION
     Route: 065
     Dates: start: 201712
  7. CEPHALEXIN. [Concomitant]
     Active Substance: CEPHALEXIN
     Indication: CELLULITIS
     Dosage: 2000 MILLIGRAM DAILY;
     Route: 065
     Dates: start: 201803
  8. ACETAMINOPHEN AND CODEINE [Concomitant]
     Active Substance: ACETAMINOPHEN\CODEINE PHOSPHATE
     Indication: INFLAMMATION
  9. OXYCODONE-ACETAMINOPHEN [Concomitant]
     Active Substance: ACETAMINOPHEN\OXYCODONE HYDROCHLORIDE
     Dosage: TAKEN ONLY ONCE, NOT REQUIRED THEREAFTER
     Route: 065
     Dates: start: 201805
  10. MISOPROSTOL. [Concomitant]
     Active Substance: MISOPROSTOL
     Route: 065
  11. MUPIROCIN. [Concomitant]
     Active Substance: MUPIROCIN
     Indication: STAPHYLOCOCCAL INFECTION
     Dosage: APPLIED THREE TIMES DAILY
     Route: 061
     Dates: start: 201804
  12. ACETIC ACID. [Concomitant]
     Active Substance: ACETIC ACID
     Indication: PSEUDOMONAS INFECTION
     Dosage: DILUTE SOAKS USING ONE-PART ACETIC ACID: THREE-PARTS WATER; WASHINGS
     Route: 061
     Dates: start: 201712
  13. CLINDAMYCIN. [Concomitant]
     Active Substance: CLINDAMYCIN
     Dosage: 1200 MILLIGRAM DAILY;
     Route: 065
     Dates: start: 201805
  14. CLOTRIMAZOLE. [Concomitant]
     Active Substance: CLOTRIMAZOLE
     Indication: CANDIDA INFECTION
     Dosage: APPLIED ONCE DAILY
     Route: 061
     Dates: start: 201701
  15. MULTIVITAMINS [Concomitant]
     Active Substance: VITAMINS
     Route: 065
  16. NAPROXEN. [Concomitant]
     Active Substance: NAPROXEN
     Indication: PAIN
     Dosage: 400 MILLIGRAM DAILY;
     Route: 065
     Dates: start: 201804
  17. NAPROXEN. [Concomitant]
     Active Substance: NAPROXEN
     Indication: INFLAMMATION
  18. ADALIMUMAB [Concomitant]
     Active Substance: ADALIMUMAB
     Dosage: LOADING DOSE
     Route: 065
     Dates: start: 201803
  19. ADALIMUMAB [Concomitant]
     Active Substance: ADALIMUMAB
     Route: 065
  20. CLOBETASOL PROPIONATE. [Concomitant]
     Active Substance: CLOBETASOL PROPIONATE
     Indication: PUSTULAR PSORIASIS
     Route: 061
     Dates: start: 201503
  21. ACETAMINOPHEN AND CODEINE [Concomitant]
     Active Substance: ACETAMINOPHEN\CODEINE PHOSPHATE
     Indication: PAIN
     Dosage: EVERY 4 HOURS AS REQUIRED
     Route: 065
     Dates: start: 201804
  22. ACITRETIN. [Suspect]
     Active Substance: ACITRETIN
     Indication: PUSTULAR PSORIASIS
     Dosage: 25 MILLIGRAM DAILY;
     Route: 065
     Dates: start: 201602, end: 201603
  23. FLUCONAZOLE. [Concomitant]
     Active Substance: FLUCONAZOLE
     Indication: CANDIDA INFECTION
     Route: 065
     Dates: start: 201701
  24. SULFAMETHOXAZOLE/TRIMETHOPRIM [Concomitant]
     Active Substance: SULFAMETHOXAZOLE\TRIMETHOPRIM
     Indication: STAPHYLOCOCCAL INFECTION
     Route: 065
     Dates: start: 201702
  25. MUPIROCIN. [Concomitant]
     Active Substance: MUPIROCIN
     Indication: STAPHYLOCOCCAL INFECTION
     Dosage: APPLIED TWICE DAILY
     Route: 061
     Dates: start: 201702
  26. ACETAMINOPHEN. [Concomitant]
     Active Substance: ACETAMINOPHEN
     Indication: INFLAMMATION
     Dosage: 400 MILLIGRAM DAILY;
     Route: 065
     Dates: start: 201804
  27. CEPHALEXIN. [Concomitant]
     Active Substance: CEPHALEXIN
     Indication: CELLULITIS
     Dosage: 2000 MILLIGRAM DAILY;
     Route: 065
     Dates: start: 201804
  28. PREDNISONE. [Concomitant]
     Active Substance: PREDNISONE
     Indication: STEROID THERAPY
     Dosage: 30 MILLIGRAM DAILY;
     Route: 065
     Dates: start: 201803
  29. CIPROFLOXACIN. [Concomitant]
     Active Substance: CIPROFLOXACIN
     Indication: ANTIBIOTIC THERAPY
     Dosage: 1000 MILLIGRAM DAILY;
     Route: 065
     Dates: start: 201712

REACTIONS (1)
  - Pustular psoriasis [Recovered/Resolved]
